FAERS Safety Report 16016838 (Version 2)
Quarter: 2019Q2

REPORT INFORMATION
  Report Type: Spontaneous
  Country: US (occurrence: US)
  Receive Date: 20190228
  Receipt Date: 20190503
  Transmission Date: 20190711
  Serious: No
  Sender: FDA-Public Use
  Company Number: US-PFIZER INC-2019084567

PATIENT
  Age: 77 Year
  Sex: Female
  Weight: 78.46 kg

DRUGS (2)
  1. VERAPAMIL HCL [Suspect]
     Active Substance: VERAPAMIL HYDROCHLORIDE
     Dosage: UNK
  2. LANOXIN [Suspect]
     Active Substance: DIGOXIN
     Dosage: UNK

REACTIONS (1)
  - Drug hypersensitivity [Unknown]
